FAERS Safety Report 5614688-0 (Version None)
Quarter: 2008Q1

REPORT INFORMATION
  Report Type: 
  Country: None (occurrence: None)
  Receive Date: 20080131
  Receipt Date: 20080117
  Transmission Date: 20080703
  Serious: Yes (Other)
  Sender: FDA-Public Use
  Company Number: TRP_01025_2008

PATIENT
  Age: 43 Year
  Sex: Female
  Weight: 94.8018 kg

DRUGS (2)
  1. RIBASPHERE [Suspect]
     Indication: HEPATITIS
     Dosage: (DF ORAL)
     Route: 048
     Dates: start: 20071213
  2. PEG-INTRON [Suspect]
     Indication: HEPATITIS
     Dosage: (DF SUBCUTANEOUS)
     Route: 058
     Dates: start: 20071213

REACTIONS (5)
  - DEHYDRATION [None]
  - NAUSEA [None]
  - SOMNOLENCE [None]
  - VOMITING [None]
  - WEIGHT INCREASED [None]
